FAERS Safety Report 10864349 (Version 1)
Quarter: 2015Q1

REPORT INFORMATION
  Report Type: Spontaneous
  Country: US (occurrence: US)
  Receive Date: 20150223
  Receipt Date: 20150223
  Transmission Date: 20150721
  Serious: Yes (Other)
  Sender: FDA-Public Use
  Company Number: US-CELGENEUS-163-21880-13091286

PATIENT
  Age: 87 Year
  Sex: Male
  Weight: 79 kg

DRUGS (30)
  1. SAW PALMETTO [Concomitant]
     Active Substance: SAW PALMETTO
     Indication: PRODUCT USED FOR UNKNOWN INDICATION
     Route: 048
  2. CRANBERRY. [Concomitant]
     Active Substance: CRANBERRY
     Indication: PRODUCT USED FOR UNKNOWN INDICATION
     Route: 048
  3. AVODART [Concomitant]
     Active Substance: DUTASTERIDE
     Indication: PRODUCT USED FOR UNKNOWN INDICATION
     Route: 065
  4. FLOMAX [Concomitant]
     Active Substance: TAMSULOSIN HYDROCHLORIDE
     Indication: PRODUCT USED FOR UNKNOWN INDICATION
     Route: 065
  5. REVLIMID [Suspect]
     Active Substance: LENALIDOMIDE
     Indication: PLASMA CELL MYELOMA
     Route: 048
     Dates: start: 20130507, end: 2013
  6. COENZYME Q10 [Concomitant]
     Active Substance: UBIDECARENONE
     Indication: PRODUCT USED FOR UNKNOWN INDICATION
     Route: 048
  7. BENICAR [Concomitant]
     Active Substance: OLMESARTAN MEDOXOMIL
     Indication: PRODUCT USED FOR UNKNOWN INDICATION
     Route: 048
  8. AMLODIPINE [Concomitant]
     Active Substance: AMLODIPINE BESYLATE
     Indication: PRODUCT USED FOR UNKNOWN INDICATION
     Route: 048
  9. DECADRON [Concomitant]
     Active Substance: DEXAMETHASONE
     Route: 065
     Dates: start: 2013
  10. ECOTRIN [Concomitant]
     Active Substance: ASPIRIN
     Indication: PRODUCT USED FOR UNKNOWN INDICATION
     Route: 065
  11. SIMVASTATIN. [Concomitant]
     Active Substance: SIMVASTATIN
     Indication: PRODUCT USED FOR UNKNOWN INDICATION
     Route: 048
  12. GLUCOSAMINE [Concomitant]
     Active Substance: GLUCOSAMINE
     Indication: PRODUCT USED FOR UNKNOWN INDICATION
     Route: 048
  13. JALYN [Concomitant]
     Active Substance: DUTASTERIDE\TAMSULOSIN HYDROCHLORIDE
     Indication: PRODUCT USED FOR UNKNOWN INDICATION
     Dosage: 0.5MG-0.4MG
     Route: 048
  14. TOVIAZ [Concomitant]
     Active Substance: FESOTERODINE FUMARATE
     Indication: PRODUCT USED FOR UNKNOWN INDICATION
     Route: 048
  15. REVLIMID [Suspect]
     Active Substance: LENALIDOMIDE
     Route: 048
     Dates: start: 20130903
  16. FISH OIL [Concomitant]
     Active Substance: FISH OIL
     Indication: PRODUCT USED FOR UNKNOWN INDICATION
     Dosage: 1,200MG-144MG-216MG
     Route: 048
  17. MULTIVITAMINS [Concomitant]
     Active Substance: VITAMINS
     Indication: PRODUCT USED FOR UNKNOWN INDICATION
     Route: 048
  18. GINGER EXTRACT [Concomitant]
     Indication: PRODUCT USED FOR UNKNOWN INDICATION
     Route: 048
  19. IMIPRAMINE [Concomitant]
     Active Substance: IMIPRAMINE
     Indication: PRODUCT USED FOR UNKNOWN INDICATION
     Route: 048
  20. ALEVE [Concomitant]
     Active Substance: NAPROXEN SODIUM
     Indication: PRODUCT USED FOR UNKNOWN INDICATION
     Route: 065
  21. PROCHLORPERAZINE MALEATE. [Concomitant]
     Active Substance: PROCHLORPERAZINE MALEATE
     Indication: PRODUCT USED FOR UNKNOWN INDICATION
     Route: 048
  22. GINKGO BILOBA [Concomitant]
     Active Substance: GINKGO
     Indication: PRODUCT USED FOR UNKNOWN INDICATION
     Route: 048
  23. REVLIMID [Suspect]
     Active Substance: LENALIDOMIDE
     Route: 048
     Dates: start: 20130625, end: 2013
  24. OMEPRAZOLE. [Concomitant]
     Active Substance: OMEPRAZOLE
     Indication: PRODUCT USED FOR UNKNOWN INDICATION
     Route: 048
  25. LEVOTHYROXINE [Concomitant]
     Active Substance: LEVOTHYROXINE
     Indication: PRODUCT USED FOR UNKNOWN INDICATION
     Route: 048
  26. TURMERIC [Concomitant]
     Active Substance: TURMERIC
     Indication: PRODUCT USED FOR UNKNOWN INDICATION
     Route: 065
  27. ASPIRIN. [Concomitant]
     Active Substance: ASPIRIN
     Indication: PRODUCT USED FOR UNKNOWN INDICATION
     Route: 048
  28. BROMELAIN [Concomitant]
     Active Substance: BROMELAINS
     Indication: PRODUCT USED FOR UNKNOWN INDICATION
     Route: 065
  29. VESICARE [Concomitant]
     Active Substance: SOLIFENACIN SUCCINATE
     Indication: PRODUCT USED FOR UNKNOWN INDICATION
     Route: 048
  30. DECADRON [Concomitant]
     Active Substance: DEXAMETHASONE
     Indication: PLASMA CELL MYELOMA
     Route: 065
     Dates: start: 201211, end: 201304

REACTIONS (3)
  - Drug dose omission [Unknown]
  - Body height decreased [Unknown]
  - Thrombosis [Recovered/Resolved]

NARRATIVE: CASE EVENT DATE: 201307
